FAERS Safety Report 7393781-9 (Version None)
Quarter: 2011Q2

REPORT INFORMATION
  Report Type: 
  Country: None (occurrence: None)
  Receive Date: 20110405
  Receipt Date: 20110328
  Transmission Date: 20111010
  Serious: Yes (Hospitalization)
  Sender: FDA-Public Use
  Company Number: JP-ELI_LILLY_AND_COMPANY-JP201101005110

PATIENT
  Sex: Male
  Weight: 46.8 kg

DRUGS (12)
  1. CYMBALTA [Suspect]
     Indication: DEPRESSION
     Dosage: 20 MG, EACH MORNING
     Route: 048
     Dates: start: 20100928, end: 20101004
  2. LULLAN [Concomitant]
     Dosage: 4 MG, DAILY (1/D)
     Route: 048
     Dates: start: 20101005, end: 20101106
  3. AMAZOLON [Concomitant]
     Indication: MUSCLE RIGIDITY
     Dosage: 50 MG, 2/D
     Route: 048
     Dates: start: 20101026, end: 20101101
  4. AMAZOLON [Concomitant]
     Dosage: 100 MG, 2/D
     Route: 048
     Dates: start: 20101102, end: 20101106
  5. ROHYPNOL [Concomitant]
     Indication: INSOMNIA
     Dosage: 1 MG, DAILY (1/D)
     Route: 048
     Dates: start: 20100902, end: 20101106
  6. GLUFAST [Concomitant]
     Indication: DIABETES MELLITUS
     Dosage: 5 MG, 3/D
     Route: 048
     Dates: start: 20100902, end: 20101106
  7. ZOPICOOL [Concomitant]
     Indication: INSOMNIA
     Dosage: 10 MG, UNK
     Route: 048
     Dates: start: 20101008, end: 20101106
  8. TAMSULOSIN HCL [Concomitant]
     Indication: URINARY RETENTION
     Dosage: 0.2 MG, EACH MORNING
     Route: 048
     Dates: start: 20101102, end: 20101106
  9. CYMBALTA [Suspect]
     Dosage: 40 MG, EACH MORNING
     Route: 048
     Dates: start: 20101005, end: 20101011
  10. LULLAN [Concomitant]
     Indication: INSOMNIA
     Dosage: 8 MG, UNK
     Route: 048
     Dates: start: 20100902, end: 20101004
  11. CYMBALTA [Suspect]
     Dosage: 60 MG, EACH MORNING
     Route: 048
     Dates: start: 20101012, end: 20101106
  12. MEDIPEACE [Concomitant]
     Indication: ANXIETY
     Dosage: 0.5 MG, 3/D
     Route: 048
     Dates: start: 20100902, end: 20101106

REACTIONS (3)
  - GRAND MAL CONVULSION [None]
  - PNEUMONIA [None]
  - FACIAL SPASM [None]
